FAERS Safety Report 11911908 (Version 4)
Quarter: 2017Q2

REPORT INFORMATION
  Report Type: Report from Study
  Country: US (occurrence: US)
  Receive Date: 20160112
  Receipt Date: 20170421
  Transmission Date: 20170829
  Serious: Yes (Hospitalization)
  Sender: FDA-Public Use
  Company Number: US-ACTELION-A-US2016-129489

PATIENT
  Age: 69 Year
  Sex: Female

DRUGS (2)
  1. ADCIRCA [Concomitant]
     Active Substance: TADALAFIL
  2. TRACLEER [Suspect]
     Active Substance: BOSENTAN
     Indication: PULMONARY ARTERIAL HYPERTENSION
     Dosage: 125 MG, UNK
     Route: 048
     Dates: start: 20130125

REACTIONS (10)
  - Diarrhoea [Recovered/Resolved]
  - Asthma [Unknown]
  - Cough [Unknown]
  - Diverticulitis [Recovered/Resolved]
  - Laryngospasm [Unknown]
  - Sinusitis [Unknown]
  - Wheezing [Unknown]
  - Dyspnoea [Recovered/Resolved]
  - Nausea [Unknown]
  - Vomiting [Recovered/Resolved]

NARRATIVE: CASE EVENT DATE: 20151209
